FAERS Safety Report 6337951-7 (Version None)
Quarter: 2009Q3

REPORT INFORMATION
  Report Type: 
  Country: None (occurrence: None)
  Receive Date: 20090902
  Receipt Date: 20090824
  Transmission Date: 20100115
  Serious: Yes (Other)
  Sender: FDA-Public Use
  Company Number: CL-PFIZER INC-2009259748

PATIENT

DRUGS (1)
  1. ECALTA [Suspect]
     Indication: SYSTEMIC CANDIDA
     Dates: start: 20090821

REACTIONS (2)
  - HAEMORRHAGE [None]
  - PROTHROMBIN TIME PROLONGED [None]
